FAERS Safety Report 4685541-4 (Version None)
Quarter: 2005Q2

REPORT INFORMATION
  Report Type: 
  Country: None (occurrence: None)
  Receive Date: 20050608
  Receipt Date: 20050525
  Transmission Date: 20051028
  Serious: Yes (Other)
  Sender: FDA-Public Use
  Company Number: 2005AP03077

PATIENT
  Age: 11834 Day
  Sex: Female
  Weight: 81 kg

DRUGS (2)
  1. PULMICORT [Suspect]
     Indication: ASTHMA
     Route: 055
  2. VENTOLIN [Concomitant]
     Indication: ASTHMA

REACTIONS (7)
  - ANAESTHETIC COMPLICATION [None]
  - APPENDICITIS [None]
  - DRUG EXPOSURE DURING PREGNANCY [None]
  - INDUCED LABOUR [None]
  - PREGNANCY [None]
  - SINUS OPERATION [None]
  - STILLBIRTH [None]
